FAERS Safety Report 7746403-9 (Version None)
Quarter: 2011Q3

REPORT INFORMATION
  Report Type: 
  Country: None (occurrence: None)
  Receive Date: 20110913
  Receipt Date: 20110913
  Transmission Date: 20111222
  Serious: Yes (Other)
  Sender: FDA-Public Use
  Company Number: None

PATIENT
  Age: 71 Year
  Sex: Male
  Weight: 122 kg

DRUGS (1)
  1. ERAXIS [Suspect]
     Indication: CANDIDIASIS
     Dosage: 100 MG
     Route: 041
     Dates: start: 20110908, end: 20110912

REACTIONS (1)
  - VENTRICULAR EXTRASYSTOLES [None]
